FAERS Safety Report 24780643 (Version 2)
Quarter: 2025Q3

REPORT INFORMATION
  Report Type: Report from Study
  Country: IL (occurrence: IL)
  Receive Date: 20241227
  Receipt Date: 20250904
  Transmission Date: 20251021
  Serious: No
  Sender: ABBVIE
  Company Number: IL-ABBVIE-6065150

PATIENT
  Age: 66 Year
  Sex: Male
  Weight: 65.3 kg

DRUGS (7)
  1. FOSCARBIDOPA\FOSLEVODOPA [Suspect]
     Active Substance: FOSCARBIDOPA\FOSLEVODOPA
     Indication: Parkinson^s disease
     Route: 058
     Dates: start: 20241124, end: 20241125
  2. FOSCARBIDOPA\FOSLEVODOPA [Suspect]
     Active Substance: FOSCARBIDOPA\FOSLEVODOPA
     Route: 058
     Dates: start: 20241125, end: 20241209
  3. FOSCARBIDOPA\FOSLEVODOPA [Suspect]
     Active Substance: FOSCARBIDOPA\FOSLEVODOPA
     Route: 058
     Dates: start: 20241209, end: 20241222
  4. RAMIPRIL [Concomitant]
     Active Substance: RAMIPRIL
     Indication: Hypertension
     Route: 048
     Dates: start: 2024
  5. Normiten (Atenolol) [Concomitant]
     Indication: Hypertension
     Route: 048
     Dates: start: 20151026
  6. CARBIDOPA\LEVODOPA [Concomitant]
     Active Substance: CARBIDOPA\LEVODOPA
     Indication: Parkinson^s disease
     Route: 048
     Dates: start: 2017, end: 20241124
  7. AMANTADINE [Concomitant]
     Active Substance: AMANTADINE
     Indication: Parkinson^s disease
     Route: 048
     Dates: start: 202403

REACTIONS (1)
  - Respiratory dyskinesia [Recovered/Resolved]

NARRATIVE: CASE EVENT DATE: 20241209
